FAERS Safety Report 14442077 (Version 1)
Quarter: 2018Q1

REPORT INFORMATION
  Report Type: Spontaneous
  Country: US (occurrence: US)
  Receive Date: 20180125
  Receipt Date: 20180125
  Transmission Date: 20180509
  Serious: Yes (Other)
  Sender: FDA-Public Use
  Company Number: US-ELI_LILLY_AND_COMPANY-US201801009506

PATIENT
  Sex: Female

DRUGS (1)
  1. CYMBALTA [Suspect]
     Active Substance: DULOXETINE HYDROCHLORIDE
     Indication: PRODUCT USED FOR UNKNOWN INDICATION
     Dosage: UNK, UNKNOWN
     Route: 065
     Dates: start: 201607

REACTIONS (7)
  - Nightmare [Unknown]
  - Dizziness [Unknown]
  - Vertigo [Unknown]
  - Tremor [Unknown]
  - Paraesthesia [Unknown]
  - Mental disorder [Unknown]
  - Confusional state [Unknown]
